FAERS Safety Report 17143840 (Version 1)
Quarter: 2019Q4

REPORT INFORMATION
  Report Type: Spontaneous
  Country: US (occurrence: US)
  Receive Date: 20191211
  Receipt Date: 20191211
  Transmission Date: 20200122
  Serious: Yes (Life-Threatening, Other)
  Sender: FDA-Public Use
  Company Number: None

PATIENT
  Age: 33 Year
  Sex: Female
  Weight: 53.55 kg

DRUGS (1)
  1. ACYCLOVIR 400 MG TABLET [Suspect]
     Active Substance: ACYCLOVIR
     Indication: GENITAL HERPES
     Dosage: ?          QUANTITY:60 TABLET(S);?
     Route: 048
     Dates: start: 20191118

REACTIONS (1)
  - Choking [None]

NARRATIVE: CASE EVENT DATE: 20191211
